FAERS Safety Report 4645809-4 (Version None)
Quarter: 2005Q2

REPORT INFORMATION
  Report Type: 
  Country: None (occurrence: None)
  Receive Date: 20050425
  Receipt Date: 20050407
  Transmission Date: 20051028
  Serious: Yes (Other)
  Sender: FDA-Public Use
  Company Number: 2005BI007296

PATIENT
  Age: 41 Year
  Sex: Female
  Weight: 160.4 kg

DRUGS (17)
  1. AVONEX [Suspect]
     Indication: MULTIPLE SCLEROSIS
     Dosage: 30 UG; QW; IM
     Route: 030
     Dates: start: 20000401, end: 20050323
  2. METHOTREXATE VS PLACEBO [Concomitant]
  3. GRAPE SEED EXTRACT [Concomitant]
  4. VITAMIN B COMPLEX CAP [Concomitant]
  5. VITAMIN C [Concomitant]
  6. PHENERGAN [Concomitant]
  7. TRIAZLEAM (TRIAZOLAM) [Concomitant]
  8. IBUPROFEN [Concomitant]
  9. CENTRUM [Concomitant]
  10. EVENING PRIMROSE GIL [Concomitant]
  11. CORAL CALCIUM [Concomitant]
  12. DIFFERIN [Concomitant]
  13. EXCEDRIN (MIGRAINE) [Concomitant]
  14. UNISOM [Concomitant]
  15. TYLENOL PM [Concomitant]
  16. FOLIC ACID [Concomitant]
  17. FLONASE [Concomitant]

REACTIONS (5)
  - ATRIAL FIBRILLATION [None]
  - BODY TEMPERATURE INCREASED [None]
  - CONDITION AGGRAVATED [None]
  - DIZZINESS EXERTIONAL [None]
  - MULTIPLE SCLEROSIS [None]
